FAERS Safety Report 4445077-2 (Version None)
Quarter: 2004Q3

REPORT INFORMATION
  Report Type: 
  Country: None (occurrence: None)
  Receive Date: 20040908
  Receipt Date: 20040908
  Transmission Date: 20050211
  Serious: Yes (Life-Threatening, Other)
  Sender: FDA-Public Use
  Company Number: None

PATIENT
  Age: 38 Year
  Sex: Female
  Weight: 81.6475 kg

DRUGS (4)
  1. ZOLOFT [Suspect]
     Indication: FIBROMYALGIA
     Dosage: UP TO 150 1X DAY ORAL, 100 1X DAY ORAL
     Route: 048
     Dates: start: 20011101, end: 20020801
  2. ZOLOFT [Suspect]
     Indication: MYOFASCIAL PAIN SYNDROME
     Dosage: UP TO 150 1X DAY ORAL, 100 1X DAY ORAL
     Route: 048
     Dates: start: 20011101, end: 20020801
  3. ZOLOFT [Suspect]
     Indication: FIBROMYALGIA
     Dosage: UP TO 150 1X DAY ORAL, 100 1X DAY ORAL
     Route: 048
     Dates: start: 20020901, end: 20040801
  4. ZOLOFT [Suspect]
     Indication: MYOFASCIAL PAIN SYNDROME
     Dosage: UP TO 150 1X DAY ORAL, 100 1X DAY ORAL
     Route: 048
     Dates: start: 20020901, end: 20040801

REACTIONS (2)
  - HIGH RISK SEXUAL BEHAVIOUR [None]
  - MANIA [None]
